FAERS Safety Report 15952106 (Version 1)
Quarter: 2019Q1

REPORT INFORMATION
  Report Type: Spontaneous
  Country: US (occurrence: US)
  Receive Date: 20190212
  Receipt Date: 20190212
  Transmission Date: 20190417
  Serious: No
  Sender: FDA-Public Use
  Company Number: US-SA-2019SA032005

PATIENT
  Sex: Female

DRUGS (3)
  1. APIDRA [Suspect]
     Active Substance: INSULIN GLULISINE
  2. GLIPIZIDE. [Suspect]
     Active Substance: GLIPIZIDE
  3. LANTUS [Suspect]
     Active Substance: INSULIN GLARGINE

REACTIONS (3)
  - Generalised erythema [Unknown]
  - Rash [Unknown]
  - Blood glucose increased [Unknown]
